FAERS Safety Report 6773991-1 (Version None)
Quarter: 2010Q2

REPORT INFORMATION
  Report Type: 
  Country: None (occurrence: None)
  Receive Date: 20100615
  Receipt Date: 20100615
  Transmission Date: 20101027
  Serious: Yes (Other)
  Sender: FDA-Public Use
  Company Number: None

PATIENT
  Age: 37 Year
  Sex: Male
  Weight: 58.9676 kg

DRUGS (1)
  1. ZOLOFT [Suspect]
     Dosage: 25 DAILY PO
     Route: 048

REACTIONS (1)
  - SEXUAL DYSFUNCTION [None]
